FAERS Safety Report 24209994 (Version 1)
Quarter: 2024Q3

REPORT INFORMATION
  Report Type: Spontaneous
  Country: US (occurrence: None)
  Receive Date: 20240813
  Receipt Date: 20240813
  Transmission Date: 20241017
  Serious: No
  Sender: Public
  Company Number: None

PATIENT
  Age: 75 Year
  Sex: Female

DRUGS (1)
  1. JAKAFI [Suspect]
     Active Substance: RUXOLITINIB
     Dosage: 60 MG TWICE A DAY ORAL
     Route: 048
     Dates: start: 20240731

REACTIONS (1)
  - Fluid retention [None]

NARRATIVE: CASE EVENT DATE: 20240813
